FAERS Safety Report 5413376-3 (Version None)
Quarter: 2007Q3

REPORT INFORMATION
  Report Type: 
  Country: None (occurrence: None)
  Receive Date: 20070810
  Receipt Date: 20070716
  Transmission Date: 20080115
  Serious: Yes (Other)
  Sender: FDA-Public Use
  Company Number: 2007RR-08737

PATIENT
  Age: 52 Year
  Sex: Male

DRUGS (1)
  1. SERTRALINE [Suspect]

REACTIONS (16)
  - ABNORMAL BEHAVIOUR [None]
  - BRADYKINESIA [None]
  - COMMUNICATION DISORDER [None]
  - DECREASED INTEREST [None]
  - DEMENTIA [None]
  - FALL [None]
  - GAIT DISTURBANCE [None]
  - HYPERTONIA [None]
  - INSOMNIA [None]
  - IRRITABILITY [None]
  - LETHARGY [None]
  - MEMORY IMPAIRMENT [None]
  - PSYCHOMOTOR RETARDATION [None]
  - SEXUAL AVERSION DISORDER [None]
  - THINKING ABNORMAL [None]
  - URINARY INCONTINENCE [None]
